FAERS Safety Report 9797747 (Version 3)
Quarter: 2014Q1

REPORT INFORMATION
  Report Type: Spontaneous
  Country: IT (occurrence: IT)
  Receive Date: 20140106
  Receipt Date: 20140114
  Transmission Date: 20141002
  Serious: Yes (Other)
  Sender: FDA-Public Use
  Company Number: IT-JNJFOC-20131019523

PATIENT
  Age: 13 Year
  Sex: Male
  Weight: 60 kg

DRUGS (11)
  1. RISPERDAL [Suspect]
     Indication: PSYCHOMOTOR HYPERACTIVITY
     Route: 048
     Dates: start: 20101203, end: 20101203
  2. RISPERDAL [Suspect]
     Indication: PSYCHOMOTOR HYPERACTIVITY
     Route: 048
     Dates: start: 20100223
  3. RISPERDAL [Suspect]
     Indication: PSYCHOMOTOR HYPERACTIVITY
     Route: 048
     Dates: start: 20100805
  4. RISPERDAL [Suspect]
     Indication: PSYCHOMOTOR HYPERACTIVITY
     Route: 048
     Dates: start: 20101203
  5. RISPERDAL [Suspect]
     Indication: PSYCHOMOTOR HYPERACTIVITY
     Route: 048
     Dates: start: 20131127
  6. RISPERIDONE [Suspect]
     Indication: PSYCHOMOTOR HYPERACTIVITY
     Route: 048
     Dates: start: 20101029
  7. CARBOLITHIUM [Suspect]
     Indication: PRODUCT USED FOR UNKNOWN INDICATION
     Route: 048
     Dates: start: 2013
  8. CARBOLITHIUM [Suspect]
     Indication: PRODUCT USED FOR UNKNOWN INDICATION
     Route: 048
     Dates: start: 2011
  9. LANSOX [Concomitant]
     Indication: PRODUCT USED FOR UNKNOWN INDICATION
     Route: 048
  10. NOPRON [Concomitant]
     Route: 065
     Dates: start: 20100223
  11. MELATONIN [Concomitant]
     Route: 065
     Dates: start: 20100223

REACTIONS (8)
  - Pituitary tumour benign [Unknown]
  - Hiatus hernia [Unknown]
  - Thyroid mass [Not Recovered/Not Resolved]
  - Breast hyperplasia [Unknown]
  - Gynaecomastia [Unknown]
  - Gastrooesophageal reflux disease [Unknown]
  - Psychomotor hyperactivity [Recovering/Resolving]
  - Compulsions [Unknown]
